FAERS Safety Report 26044404 (Version 1)
Quarter: 2025Q4

REPORT INFORMATION
  Report Type: Report from Study
  Country: CA (occurrence: CA)
  Receive Date: 20251114
  Receipt Date: 20251114
  Transmission Date: 20260118
  Serious: Yes (Life-Threatening)
  Sender: ABBVIE
  Company Number: CA-ABBVIE-6547001

PATIENT
  Age: 28 Year
  Sex: Female
  Weight: 88 kg

DRUGS (7)
  1. CARIPRAZINE [Suspect]
     Active Substance: CARIPRAZINE
     Indication: Bipolar I disorder
     Route: 048
     Dates: start: 20250730, end: 20250825
  2. CARIPRAZINE [Suspect]
     Active Substance: CARIPRAZINE
     Indication: Bipolar I disorder
     Route: 048
     Dates: start: 20250826
  3. OXYCODONE [Concomitant]
     Active Substance: OXYCODONE
     Indication: Scoliosis
     Dosage: TIME INTERVAL: AS NECESSARY
     Route: 048
     Dates: start: 202502
  4. ETHINYL ESTRADIOL\LEVONORGESTREL [Concomitant]
     Active Substance: ETHINYL ESTRADIOL\LEVONORGESTREL
     Indication: Contraception
     Dosage: 20+100 UG
     Route: 048
     Dates: start: 20250522
  5. QUETIAPINE [Concomitant]
     Active Substance: QUETIAPINE
     Indication: Insomnia
     Dosage: TIME INTERVAL: AS NECESSARY
     Route: 048
     Dates: start: 20250228
  6. VITAMIN D [Concomitant]
     Active Substance: VITAMIN D NOS
     Indication: Vitamin D deficiency
     Dosage: DOSE 1000UI
     Route: 048
     Dates: start: 202508
  7. DULOXETINE [Concomitant]
     Active Substance: DULOXETINE
     Indication: Fibromyalgia
     Route: 048
     Dates: start: 20251017

REACTIONS (1)
  - Suicidal ideation [Not Recovered/Not Resolved]

NARRATIVE: CASE EVENT DATE: 20251111
